FAERS Safety Report 13849499 (Version 2)
Quarter: 2017Q3

REPORT INFORMATION
  Report Type: Spontaneous
  Country: US (occurrence: US)
  Receive Date: 20170809
  Receipt Date: 20170816
  Transmission Date: 20171127
  Serious: No
  Sender: FDA-Public Use
  Company Number: US-PFIZER INC-2017338973

PATIENT
  Sex: Female

DRUGS (3)
  1. METHOTREXATE SODIUM. [Suspect]
     Active Substance: METHOTREXATE SODIUM
     Dosage: UNK
  2. XANAX [Suspect]
     Active Substance: ALPRAZOLAM
     Dosage: 0.25 MG, UNK
  3. EPINEPHRINE. [Suspect]
     Active Substance: EPINEPHRINE
     Dosage: UNK

REACTIONS (9)
  - Mucosal inflammation [Not Recovered/Not Resolved]
  - Pain in extremity [Unknown]
  - Musculoskeletal stiffness [Unknown]
  - Mouth ulceration [Unknown]
  - Angular cheilitis [Unknown]
  - Arthralgia [Unknown]
  - Joint swelling [Unknown]
  - Fatigue [Unknown]
  - Occupational physical problem [Unknown]
